FAERS Safety Report 9246493 (Version 1)
Quarter: 2013Q2

REPORT INFORMATION
  Report Type: Spontaneous
  Country: US (occurrence: US)
  Receive Date: 20130422
  Receipt Date: 20130422
  Transmission Date: 20140414
  Serious: No
  Sender: FDA-Public Use
  Company Number: US-ABBOTT-12P-163-0970406-00

PATIENT
  Age: 9 Year
  Sex: Female
  Weight: 36.32 kg

DRUGS (5)
  1. LUPRON DEPOT-PED 30 MG (3 MONTH) [Suspect]
     Indication: PRECOCIOUS PUBERTY
     Route: 050
     Dates: start: 201111, end: 20120809
  2. LUPRON DEPOT-PED 15 MG [Suspect]
     Indication: PRECOCIOUS PUBERTY
     Route: 050
     Dates: start: 20120809
  3. FLOVENT [Concomitant]
     Indication: ASTHMA
  4. VENTOLIN INHALER [Concomitant]
     Indication: ASTHMA
  5. MULTIVITAMINS [Concomitant]
     Indication: VITAMIN SUPPLEMENTATION
     Route: 048

REACTIONS (8)
  - Injection site bruising [Recovered/Resolved]
  - Injection site erythema [Recovered/Resolved]
  - Headache [Recovered/Resolved]
  - Mood swings [Not Recovered/Not Resolved]
  - Tearfulness [Not Recovered/Not Resolved]
  - Injection site swelling [Recovered/Resolved]
  - Injection site pain [Recovered/Resolved]
  - Injection site pain [Recovered/Resolved]
